FAERS Safety Report 19414358 (Version 1)
Quarter: 2021Q2

REPORT INFORMATION
  Report Type: Spontaneous
  Country: NL (occurrence: NL)
  Receive Date: 20210615
  Receipt Date: 20210615
  Transmission Date: 20210717
  Serious: Yes (Life-Threatening)
  Sender: FDA-Public Use
  Company Number: NL-NOVOPROD-819334

PATIENT
  Age: 65 Year
  Sex: Male
  Weight: 98 kg

DRUGS (7)
  1. METFORMIN [Concomitant]
     Active Substance: METFORMIN HYDROCHLORIDE
     Dosage: 1000 MG, BID
     Dates: start: 2016
  2. TRESIBA [Suspect]
     Active Substance: INSULIN DEGLUDEC
     Dosage: UNK
     Route: 065
  3. EMTHEXATE [METHOTREXATE] [Suspect]
     Active Substance: METHOTREXATE
     Indication: POLYARTHRITIS
     Dosage: 1 X PER WEEK
     Route: 065
     Dates: start: 202103, end: 20210502
  4. NOVORAPID [Concomitant]
     Active Substance: INSULIN ASPART
     Dosage: 36 IU, QD (16?0?20)
     Route: 065
     Dates: start: 2018, end: 20210517
  5. ASTRAZENECA COVID?19 VACCINE [Suspect]
     Active Substance: AZD-1222
     Indication: COVID-19 IMMUNISATION
     Dosage: UNK
     Route: 065
     Dates: start: 20210503
  6. TRESIBA [Suspect]
     Active Substance: INSULIN DEGLUDEC
     Indication: DIABETES MELLITUS
     Dosage: 40 IU
     Route: 065
     Dates: start: 202102
  7. MITOMYCINE [Suspect]
     Active Substance: MITOMYCIN
     Indication: BLADDER CANCER
     Dosage: 11/2, 18/2, 25/2, 4/3, 1/4, 29/4
     Route: 065
     Dates: start: 202102

REACTIONS (20)
  - Fatigue [Recovering/Resolving]
  - Dry mouth [Recovered/Resolved]
  - Oropharyngeal pain [Recovered/Resolved]
  - Tachycardia [Recovered/Resolved]
  - Hyperglycaemia [Recovered/Resolved]
  - Pyrexia [Recovered/Resolved]
  - Chills [Recovered/Resolved]
  - Platelet count decreased [Recovered/Resolved]
  - Insomnia [Recovered/Resolved]
  - Anal incontinence [Recovered/Resolved]
  - Headache [Recovered/Resolved]
  - Cough [Recovered/Resolved]
  - Myalgia [Recovered/Resolved]
  - Parosmia [Recovered/Resolved]
  - Decreased appetite [Recovered/Resolved]
  - Dyspnoea [Recovered/Resolved]
  - Disturbance in attention [Recovering/Resolving]
  - Hallucination [Recovered/Resolved]
  - Malaise [Recovered/Resolved]
  - Urinary incontinence [Recovered/Resolved]

NARRATIVE: CASE EVENT DATE: 20210505
